FAERS Safety Report 10489062 (Version 1)
Quarter: 2014Q4

REPORT INFORMATION
  Report Type: Spontaneous
  Country: FR (occurrence: FR)
  Receive Date: 20141002
  Receipt Date: 20141002
  Transmission Date: 20150528
  Serious: Yes (Other)
  Sender: FDA-Public Use
  Company Number: FR-MERCK-1409FRA011885

PATIENT
  Age: 59 Year
  Sex: Male

DRUGS (14)
  1. CALCIPARINE [Suspect]
     Active Substance: HEPARIN CALCIUM
     Dosage: 1 DF DAILY
     Route: 058
     Dates: start: 20140729, end: 20140808
  2. PAROXETINE HYDROCHLORIDE. [Concomitant]
     Active Substance: PAROXETINE HYDROCHLORIDE
     Dosage: 20 MG, QD
     Route: 048
  3. KARDEGIC [Concomitant]
     Active Substance: ASPIRIN LYSINE
     Route: 048
  4. IMIPENEM AND CILASTATIN [Suspect]
     Active Substance: CILASTATIN SODIUM\IMIPENEM
     Dosage: 1 DF DAILY
     Route: 042
     Dates: start: 20140729, end: 20140802
  5. TARGOCID [Suspect]
     Active Substance: TEICOPLANIN
     Dosage: 400 MG/3.2
     Route: 042
     Dates: start: 20140729, end: 20140806
  6. CEFEPIME [Suspect]
     Active Substance: CEFEPIME\CEFEPIME HYDROCHLORIDE
     Dosage: 1 DF QD, PANPHARMA
     Route: 042
     Dates: start: 20140729, end: 20140813
  7. ACTISKENAN [Concomitant]
     Active Substance: MORPHINE SULFATE
  8. GENTAMICIN SULFATE. [Suspect]
     Active Substance: GENTAMICIN SULFATE
     Dosage: UNK
     Route: 042
     Dates: start: 20140730, end: 20140731
  9. RISPERDAL [Concomitant]
     Active Substance: RISPERIDONE
     Route: 048
  10. INVANZ [Suspect]
     Active Substance: ERTAPENEM SODIUM
     Dosage: UNK, STRENGTH: 1G
     Route: 042
     Dates: start: 20140729, end: 20140806
  11. ZYVOXID [Suspect]
     Active Substance: LINEZOLID
     Dosage: 600 MG, UNK
     Route: 042
     Dates: start: 20140729, end: 20140808
  12. ATENOLOL. [Concomitant]
     Active Substance: ATENOLOL
     Route: 048
  13. XATRAL [Concomitant]
     Active Substance: ALFUZOSIN
     Route: 048
  14. LOVENOX [Suspect]
     Active Substance: ENOXAPARIN SODIUM
     Dosage: 1 DF, QD
     Route: 058
     Dates: start: 20140723, end: 20140729

REACTIONS (1)
  - Thrombocytopenia [Recovered/Resolved]

NARRATIVE: CASE EVENT DATE: 20140806
